FAERS Safety Report 8185442-3 (Version None)
Quarter: 2012Q1

REPORT INFORMATION
  Report Type: 
  Country: None (occurrence: None)
  Receive Date: 20120305
  Receipt Date: 20120229
  Transmission Date: 20120608
  Serious: Yes (Life-Threatening, Hospitalization)
  Sender: FDA-Public Use
  Company Number: US-MEDIMMUNE-MEDI-0013855

PATIENT
  Sex: Male
  Weight: 7.355 kg

DRUGS (2)
  1. SYNAGIS [Suspect]
     Route: 030
     Dates: start: 20111111, end: 20120208
  2. SYNAGIS [Suspect]
     Dates: start: 20111007, end: 20111007

REACTIONS (1)
  - RESPIRATORY DISTRESS [None]
